FAERS Safety Report 17962497 (Version 1)
Quarter: 2020Q2

REPORT INFORMATION
  Report Type: Spontaneous
  Country: US (occurrence: US)
  Receive Date: 20200629
  Receipt Date: 20200629
  Transmission Date: 20200714
  Serious: Yes (Other)
  Sender: FDA-Public Use
  Company Number: None

PATIENT
  Age: 60 Year
  Sex: Female
  Weight: 65.25 kg

DRUGS (10)
  1. NP THYROID [Suspect]
     Active Substance: LEVOTHYROXINE\LIOTHYRONINE
     Indication: HYPOTHYROIDISM
     Dosage: ?          QUANTITY:30 TABLET(S);?
     Route: 048
     Dates: start: 20180526
  2. PROGESTERONE MICRONIZED [Concomitant]
  3. OMEGA 3 COQ10 [Concomitant]
  4. VITAMIN B12 [Concomitant]
     Active Substance: CYANOCOBALAMIN
  5. VITAMIN D3 [Concomitant]
     Active Substance: CHOLECALCIFEROL
  6. DIM SGS [Concomitant]
  7. VITAMIN C [Concomitant]
     Active Substance: ASCORBIC ACID
  8. IODINE PLUS [Concomitant]
  9. ESTRADIOL VAGINAL CREAM [Concomitant]
     Active Substance: ESTRADIOL
  10. BABY ASPIRIN [Concomitant]
     Active Substance: ASPIRIN

REACTIONS (13)
  - Narcolepsy [None]
  - Sleep disorder [None]
  - Confusional state [None]
  - Dizziness [None]
  - Syncope [None]
  - Tremor [None]
  - Fatigue [None]
  - Chest pain [None]
  - Asthenia [None]
  - Palpitations [None]
  - Dry mouth [None]
  - Erythema [None]
  - Decreased appetite [None]

NARRATIVE: CASE EVENT DATE: 20200621
